FAERS Safety Report 9471134 (Version 5)
Quarter: 2014Q2

REPORT INFORMATION
  Report Type: Report from Study
  Country: JP (occurrence: JP)
  Receive Date: 20130822
  Receipt Date: 20140609
  Transmission Date: 20141212
  Serious: Yes (Hospitalization)
  Sender: FDA-Public Use
  Company Number: JP-PFIZER INC-2013239107

PATIENT
  Age: 77 Year
  Sex: Male
  Weight: 47 kg

DRUGS (8)
  1. CRIZOTINIB [Suspect]
     Indication: NON-SMALL CELL LUNG CANCER
     Dosage: 200 MG, 2X/DAY
     Route: 048
     Dates: start: 20130523, end: 20130616
  2. TAKEPRON OD [Concomitant]
     Dosage: 15 MG, DAILY
     Route: 048
  3. LAC B [Concomitant]
     Dosage: 1 G, 3X/DAY
     Route: 048
  4. LOXOPROFEN SODIUM [Concomitant]
     Dosage: 60 MG, 3X/DAY
     Route: 048
  5. REBAMIPIDE [Concomitant]
     Dosage: 100 MG, 3X/DAY
     Route: 048
  6. BETAMETHASONE [Concomitant]
     Dosage: 2 MG, 1X/DAY
     Route: 048
  7. BAKTAR [Concomitant]
     Dosage: DAILY
     Route: 048
  8. LASIX [Concomitant]
     Dosage: 20 MG, 1X/DAY
     Route: 048
     Dates: start: 20130606, end: 20130612

REACTIONS (1)
  - Interstitial lung disease [Recovering/Resolving]
